FAERS Safety Report 16365620 (Version 1)
Quarter: 2019Q2

REPORT INFORMATION
  Report Type: Spontaneous
  Country: US (occurrence: US)
  Receive Date: 20190422
  Receipt Date: 20190422
  Transmission Date: 20190711
  Serious: No
  Sender: FDA-Public Use
  Company Number: None

PATIENT
  Age: 55 Year
  Sex: Female

DRUGS (10)
  1. HYDROMORPHON [Concomitant]
     Active Substance: HYDROMORPHONE
  2. HCTZ [Concomitant]
     Active Substance: HYDROCHLOROTHIAZIDE
  3. ASPIRIN. [Concomitant]
     Active Substance: ASPIRIN
  4. CELECOXIB. [Concomitant]
     Active Substance: CELECOXIB
  5. HUMIRA [Suspect]
     Active Substance: ADALIMUMAB
     Indication: CROHN^S DISEASE
     Route: 058
     Dates: start: 20150729
  6. TRAMADOL. [Concomitant]
     Active Substance: TRAMADOL
  7. MULTIVITAMIN [Concomitant]
     Active Substance: VITAMINS
  8. GABAPENTIN. [Concomitant]
     Active Substance: GABAPENTIN
  9. AMLODIPINE [Concomitant]
     Active Substance: AMLODIPINE BESYLATE
  10. MAPAP [Concomitant]
     Active Substance: ACETAMINOPHEN

REACTIONS (2)
  - Surgery [None]
  - Therapy cessation [None]

NARRATIVE: CASE EVENT DATE: 20190419
